FAERS Safety Report 10445772 (Version 1)
Quarter: 2014Q3

REPORT INFORMATION
  Report Type: Report from Study
  Country: US (occurrence: US)
  Receive Date: 20140910
  Receipt Date: 20140910
  Transmission Date: 20150326
  Serious: Yes (Disabling)
  Sender: FDA-Public Use
  Company Number: US-009507513-1409USA003459

PATIENT
  Age: 76 Year
  Sex: Female
  Weight: 42.1 kg

DRUGS (1)
  1. HEXADROL [Suspect]
     Active Substance: DEXAMETHASONE
     Indication: PLASMA CELL MYELOMA
     Dosage: 20 MG, QD (7 DAYS A WEEK)
     Route: 048
     Dates: start: 20110317

REACTIONS (1)
  - Neuropathy peripheral [Recovering/Resolving]

NARRATIVE: CASE EVENT DATE: 20110410
